FAERS Safety Report 14849543 (Version 1)
Quarter: 2018Q2

REPORT INFORMATION
  Report Type: Spontaneous
  Country: CA (occurrence: CA)
  Receive Date: 20180504
  Receipt Date: 20180504
  Transmission Date: 20180711
  Serious: Yes (Other)
  Sender: FDA-Public Use
  Company Number: CA-PFIZER INC-2018167695

PATIENT
  Sex: Female

DRUGS (1)
  1. DOSTINEX [Suspect]
     Active Substance: CABERGOLINE
     Dosage: 0.5 MG, 2X/WEEK

REACTIONS (5)
  - Mental impairment [Unknown]
  - Mood swings [Unknown]
  - Alcohol use [Unknown]
  - Sexual activity increased [Unknown]
  - Alcohol poisoning [Unknown]
